FAERS Safety Report 8273576-4 (Version None)
Quarter: 2012Q2

REPORT INFORMATION
  Report Type: 
  Country: None (occurrence: None)
  Receive Date: 20120409
  Receipt Date: 20120409
  Transmission Date: 20120825
  Serious: Yes (Other)
  Sender: FDA-Public Use
  Company Number: None

PATIENT
  Age: 80 Year
  Sex: Male
  Weight: 102.3 kg

DRUGS (1)
  1. PIPERACILLIN AND TAZOBACTAM [Suspect]
     Indication: OSTEOMYELITIS
     Dosage: 4.5 GM TID IV
     Route: 042
     Dates: start: 20110701, end: 20110702

REACTIONS (1)
  - ANGIOEDEMA [None]
